FAERS Safety Report 14480263 (Version 3)
Quarter: 2018Q1

REPORT INFORMATION
  Report Type: Spontaneous
  Country: ES (occurrence: ES)
  Receive Date: 20180202
  Receipt Date: 20180213
  Transmission Date: 20180509
  Serious: Yes (Hospitalization)
  Sender: FDA-Public Use
  Company Number: ES-JNJFOC-20180200826

PATIENT
  Age: 26 Year
  Sex: Female
  Weight: 49 kg

DRUGS (7)
  1. IBUPROFEN. [Concomitant]
     Active Substance: IBUPROFEN
     Indication: TUMOUR PAIN
     Route: 048
     Dates: start: 201712
  2. SUNITINIB [Suspect]
     Active Substance: SUNITINIB
     Indication: SYNOVIAL SARCOMA
     Route: 048
     Dates: start: 20180110
  3. MORPHINE [Suspect]
     Active Substance: MORPHINE
     Indication: TUMOUR PAIN
     Route: 058
     Dates: start: 201712
  4. FENTANYL. [Suspect]
     Active Substance: FENTANYL
     Indication: TUMOUR PAIN
     Route: 062
     Dates: start: 201712
  5. SUNITINIB [Suspect]
     Active Substance: SUNITINIB
     Indication: SYNOVIAL SARCOMA
     Route: 048
     Dates: start: 20171227, end: 20180103
  6. ZALDIAR [Concomitant]
     Active Substance: ACETAMINOPHEN\TRAMADOL HYDROCHLORIDE
     Indication: TUMOUR PAIN
     Route: 048
     Dates: start: 201712
  7. ENANTYUM [Concomitant]
     Active Substance: DEXKETOPROFEN TROMETAMOL
     Indication: TUMOUR PAIN
     Route: 048
     Dates: start: 201712

REACTIONS (2)
  - Vomiting [Recovered/Resolved]
  - Urinary tract infection [Recovered/Resolved]

NARRATIVE: CASE EVENT DATE: 20180103
